FAERS Safety Report 9553350 (Version 1)
Quarter: 2013Q3

REPORT INFORMATION
  Report Type: Spontaneous
  Country: US (occurrence: US)
  Receive Date: 20130925
  Receipt Date: 20130925
  Transmission Date: 20140515
  Serious: No
  Sender: FDA-Public Use
  Company Number: US-PFIZER INC-2013273238

PATIENT
  Sex: 0

DRUGS (2)
  1. MEDROXYPROGESTERONE ACETATE [Suspect]
     Dosage: 2.5 MG, UNK
  2. ESTRADIOL [Suspect]
     Dosage: 1 MG, UNK

REACTIONS (1)
  - Hot flush [Unknown]
